FAERS Safety Report 9332933 (Version 4)
Quarter: 2013Q3

REPORT INFORMATION
  Report Type: Spontaneous
  Country: US (occurrence: US)
  Receive Date: 20130606
  Receipt Date: 20130809
  Transmission Date: 20140515
  Serious: Yes (Hospitalization)
  Sender: FDA-Public Use
  Company Number: US-PFIZER INC-2013167227

PATIENT
  Age: 84 Year
  Sex: Male
  Weight: 73.47 kg

DRUGS (17)
  1. INLYTA [Suspect]
     Indication: RENAL CELL CARCINOMA
     Dosage: 5 MG, 2X/DAY
     Route: 048
     Dates: start: 201212
  2. INLYTA [Suspect]
     Dosage: 5 MG, 2X/DAY
     Route: 048
     Dates: start: 201301
  3. ATENOLOL [Concomitant]
     Indication: HYPERTENSION
     Dosage: 25 MG, 1X/DAY
  4. MATZIM LA [Concomitant]
     Indication: HYPERTENSION
     Dosage: 90 MG, 2X/DAY
     Route: 048
  5. HYDRALAZINE [Concomitant]
     Indication: HYPERTENSION
     Dosage: 75 MG, 3X/DAY
  6. PRAVASTATIN [Concomitant]
     Dosage: 40 MG, 1X/DAY
  7. FUROSEMIDE [Concomitant]
     Dosage: 40 MG, 1X/DAY
  8. CHLORTHALIDONE [Concomitant]
     Dosage: 25 MG, 1X/DAY
  9. CALCITROL [Concomitant]
     Dosage: 0.25 MG, ALTERNATE DAY
  10. COZAAR [Concomitant]
     Dosage: 50 MG, 1X/DAY
  11. NORVASC [Concomitant]
     Dosage: 5 MG, 1X/DAY
  12. KCL [Concomitant]
     Dosage: 20 MG, UNK
  13. ALLOPURINOL [Concomitant]
     Dosage: UNK
  14. FLOMAX [Concomitant]
     Dosage: UNK
  15. VITAMIN B1 [Concomitant]
     Dosage: UNK
  16. VITAMIN B6 [Concomitant]
     Dosage: UNK
  17. VITAMIN B12 [Concomitant]
     Dosage: UNK

REACTIONS (3)
  - Diverticulitis [Recovering/Resolving]
  - Rectal haemorrhage [Recovered/Resolved]
  - Hypertension [Unknown]
